FAERS Safety Report 23487514 (Version 1)
Quarter: 2024Q1

REPORT INFORMATION
  Report Type: Report from Study
  Country: US (occurrence: US)
  Receive Date: 20240206
  Receipt Date: 20240206
  Transmission Date: 20240410
  Serious: No
  Sender: FDA-Public Use
  Company Number: US-ORG100014127-2023000469

PATIENT
  Age: 60 Year
  Sex: Female

DRUGS (7)
  1. LYSODREN [Suspect]
     Active Substance: MITOTANE
     Indication: Adrenal gland cancer
     Dosage: 5 TABLETS BY MOUTH TWICE DAILY AS DIRECTED BY MD
     Route: 048
     Dates: start: 20230121, end: 20230327
  2. LYSODREN [Suspect]
     Active Substance: MITOTANE
     Indication: Adrenal gland cancer
     Dates: start: 20230410
  3. Hydrocodone tablet 20 mg ER [Concomitant]
     Indication: Product used for unknown indication
  4. Hydrocort tablet 10 mg [Concomitant]
     Indication: Product used for unknown indication
  5. Ondansetron tablet 8 mg [Concomitant]
     Indication: Product used for unknown indication
  6. Tylenol tab 500mg [Concomitant]
     Indication: Product used for unknown indication
  7. Xanax tablet 0.5 mg [Concomitant]
     Indication: Product used for unknown indication

REACTIONS (6)
  - Pain in jaw [Not Recovered/Not Resolved]
  - Depression [Not Recovered/Not Resolved]
  - Decreased appetite [Not Recovered/Not Resolved]
  - Nausea [Not Recovered/Not Resolved]
  - Vomiting [Not Recovered/Not Resolved]
  - Fatigue [Not Recovered/Not Resolved]

NARRATIVE: CASE EVENT DATE: 20230130
